FAERS Safety Report 6264170-5 (Version None)
Quarter: 2009Q3

REPORT INFORMATION
  Report Type: 
  Country: None (occurrence: None)
  Receive Date: 20090710
  Receipt Date: 20090629
  Transmission Date: 20100115
  Serious: Yes (Other)
  Sender: FDA-Public Use
  Company Number: US-PFIZER INC-2009228632

PATIENT
  Age: 57 Year
  Sex: Female

DRUGS (1)
  1. ZYVOX [Suspect]
     Dosage: 600 MG, 2X/DAY
     Route: 048
     Dates: end: 20090301

REACTIONS (2)
  - COLITIS [None]
  - DIARRHOEA [None]
